FAERS Safety Report 7919721-9 (Version None)
Quarter: 2011Q4

REPORT INFORMATION
  Report Type: 
  Country: None (occurrence: None)
  Receive Date: 20111117
  Receipt Date: 20111117
  Transmission Date: 20120403
  Serious: Yes (Hospitalization)
  Sender: FDA-Public Use
  Company Number: GR-ABBOTT-11P-066-0843265-00

PATIENT
  Sex: Female
  Weight: 98 kg

DRUGS (12)
  1. PLAVIX [Concomitant]
     Indication: ANGIOPATHY
     Route: 048
     Dates: start: 20080806
  2. OMACOR [Concomitant]
     Indication: DYSLIPIDAEMIA
     Route: 048
     Dates: start: 20080301
  3. EZETIMIBE [Concomitant]
     Indication: DYSLIPIDAEMIA
     Dosage: (10+20) MG
     Route: 048
     Dates: start: 20080707
  4. RENVELA [Concomitant]
     Indication: HYPERPHOSPHATAEMIA
     Dates: start: 20100322
  5. FERROUS SULFATE TAB [Concomitant]
     Indication: IRON DEFICIENCY ANAEMIA
     Route: 048
     Dates: start: 20100628
  6. NORVASC [Concomitant]
     Indication: HYPERTENSION
     Dates: start: 20110322
  7. LASIX [Concomitant]
     Indication: HYPERTENSION
     Route: 048
     Dates: start: 20110110
  8. PERINDOPRIL ERBUMINE [Concomitant]
     Indication: PRODUCT USED FOR UNKNOWN INDICATION
     Route: 048
     Dates: start: 20080407
  9. LANTUS [Concomitant]
     Indication: TYPE 2 DIABETES MELLITUS
     Route: 058
     Dates: start: 20110322
  10. ZEMPLAR [Suspect]
     Indication: PRODUCT USED FOR UNKNOWN INDICATION
     Dates: start: 20091221
  11. PLAVIX [Concomitant]
     Indication: TYPE 2 DIABETES MELLITUS
  12. THYRO-4 [Concomitant]
     Indication: THYROID DISORDER
     Route: 048
     Dates: start: 20101002

REACTIONS (2)
  - STENT PLACEMENT [None]
  - CORONARY ARTERY DISEASE [None]
